FAERS Safety Report 15893830 (Version 1)
Quarter: 2019Q1

REPORT INFORMATION
  Report Type: Spontaneous
  Country: BR (occurrence: BR)
  Receive Date: 20190131
  Receipt Date: 20190131
  Transmission Date: 20190417
  Serious: Yes (Hospitalization, Other)
  Sender: FDA-Public Use
  Company Number: BR-ALEXION PHARMACEUTICALS INC.-A201901379

PATIENT
  Age: 11 Year
  Sex: Female
  Weight: 42 kg

DRUGS (2)
  1. SOLIRIS [Suspect]
     Active Substance: ECULIZUMAB
     Indication: THROMBOTIC MICROANGIOPATHY
     Dosage: 900 MG, QW
     Route: 065
     Dates: start: 20181125
  2. SOLIRIS [Suspect]
     Active Substance: ECULIZUMAB
     Indication: OFF LABEL USE
     Dosage: UNK
     Route: 065

REACTIONS (17)
  - Pseudomonas infection [Unknown]
  - Anaemia [Unknown]
  - Chronic graft versus host disease in intestine [Unknown]
  - Red blood cell schistocytes present [Unknown]
  - Renal impairment [Unknown]
  - Off label use [Not Recovered/Not Resolved]
  - Total complement activity increased [Unknown]
  - Thrombocytopenia [Unknown]
  - Traumatic lung injury [Unknown]
  - Hypertension [Unknown]
  - Aspergillus infection [Unknown]
  - Hepatic function abnormal [Unknown]
  - Condition aggravated [Unknown]
  - Parainfluenzae virus infection [Unknown]
  - Chronic graft versus host disease in skin [Unknown]
  - Blood lactate dehydrogenase increased [Unknown]
  - Proteinuria [Unknown]

NARRATIVE: CASE EVENT DATE: 20181125
